FAERS Safety Report 17438781 (Version 2)
Quarter: 2020Q1

REPORT INFORMATION
  Report Type: Report from Study
  Country: KR (occurrence: KR)
  Receive Date: 20200220
  Receipt Date: 20200317
  Transmission Date: 20200409
  Serious: Yes (Hospitalization)
  Sender: FDA-Public Use
  Company Number: KR-CELLTRION INC.-2020KR017690

PATIENT

DRUGS (12)
  1. ATORVASTATIN [Concomitant]
     Active Substance: ATORVASTATIN
     Indication: HYPERLIPIDAEMIA
     Dosage: 5 MG, QD
     Route: 048
     Dates: start: 201204
  2. NANOXEL [Suspect]
     Active Substance: PACLITAXEL
     Dosage: 60 MG/M2 (CYCLE2, D1)
     Route: 042
     Dates: start: 20200114, end: 20200114
  3. TARGIN CR [Concomitant]
     Active Substance: NALOXONE HYDROCHLORIDE\OXYCODONE HYDROCHLORIDE
     Indication: TUMOUR PAIN
     Dosage: 1 TAB, BID
     Route: 048
     Dates: start: 20191213
  4. LACTULOSE. [Concomitant]
     Active Substance: LACTULOSE
     Indication: CONSTIPATION
     Dosage: 1 PAK, TID
     Route: 048
     Dates: start: 20191216
  5. HERZUMA [Suspect]
     Active Substance: TRASTUZUMAB-PKRB
     Dosage: 6 MG/KG (CYCLE2, D1)
     Route: 042
     Dates: start: 20200114, end: 20200114
  6. HERZUMA [Suspect]
     Active Substance: TRASTUZUMAB-PKRB
     Indication: SALIVARY GLAND CANCER
     Dosage: 8 MG/KG (LOADING DOSE)
     Route: 042
     Dates: start: 20191223, end: 20191223
  7. NANOXEL [Suspect]
     Active Substance: PACLITAXEL
     Indication: SALIVARY GLAND CANCER
     Dosage: 75 MG/M2
     Route: 042
     Dates: start: 20191224, end: 20191224
  8. ESOMEPRAZOLE. [Concomitant]
     Active Substance: ESOMEPRAZOLE MAGNESIUM
     Indication: GASTRITIS PROPHYLAXIS
     Dosage: 20 MG, QD
     Route: 048
     Dates: start: 201910
  9. WARFARIN [Concomitant]
     Active Substance: WARFARIN
     Indication: PROPHYLAXIS
     Dosage: 4 MG, QD
     Route: 048
     Dates: start: 201204
  10. METFORMIN [Concomitant]
     Active Substance: METFORMIN HYDROCHLORIDE
     Indication: DIABETES MELLITUS
     Dosage: 500 MG, QD
     Route: 048
     Dates: start: 201204
  11. MAGNESIUM OXIDE. [Concomitant]
     Active Substance: MAGNESIUM OXIDE
     Indication: CONSTIPATION
     Dosage: 500 MG, TID
     Route: 048
     Dates: start: 20191213
  12. BESZYME [Concomitant]
     Indication: CONSTIPATION
     Dosage: 1 TAB, TID
     Route: 048
     Dates: start: 20191213

REACTIONS (3)
  - Product use in unapproved indication [Unknown]
  - Dermal cyst [Recovered/Resolved]
  - Febrile neutropenia [Recovered/Resolved]

NARRATIVE: CASE EVENT DATE: 20191231
